FAERS Safety Report 5817266-3 (Version None)
Quarter: 2008Q3

REPORT INFORMATION
  Report Type: 
  Country: None (occurrence: None)
  Receive Date: 20080722
  Receipt Date: 20080717
  Transmission Date: 20090109
  Serious: Yes (Congenital Anomaly)
  Sender: FDA-Public Use
  Company Number: A0680676A

PATIENT
  Sex: Male
  Weight: 3.8 kg

DRUGS (7)
  1. PAXIL [Suspect]
     Indication: DEPRESSION
     Dosage: 20MG PER DAY
     Dates: start: 19980101, end: 20000101
  2. VITAMIN TAB [Concomitant]
  3. METOCLOPRAMIDE [Concomitant]
  4. PROCHLORPERAZINE [Concomitant]
  5. IBUPROFEN [Concomitant]
  6. AMOXICILLIN [Concomitant]
  7. TIGAN [Concomitant]
     Dates: start: 19990628, end: 19990628

REACTIONS (4)
  - ATRIAL SEPTAL DEFECT [None]
  - DRUG EXPOSURE DURING PREGNANCY [None]
  - SLEEP APNOEA SYNDROME [None]
  - VENTRICULAR SEPTAL DEFECT [None]
